FAERS Safety Report 25768538 (Version 3)
Quarter: 2025Q4

REPORT INFORMATION
  Report Type: Spontaneous
  Country: US (occurrence: US)
  Receive Date: 20250905
  Receipt Date: 20251007
  Transmission Date: 20260117
  Serious: No
  Sender: BAYER HEALTHCARE LLC
  Company Number: US-BAYER-2025A118152

PATIENT
  Age: 77 Year
  Sex: Female

DRUGS (2)
  1. CLARITIN ALLERGY [Suspect]
     Active Substance: LORATADINE
     Indication: Hypersensitivity
     Dosage: 10 ML
     Route: 048
     Dates: start: 20250830, end: 20250903
  2. CLARITIN ALLERGY [Suspect]
     Active Substance: LORATADINE
     Indication: Nasopharyngitis

REACTIONS (3)
  - Abdominal pain upper [Recovered/Resolved]
  - Product use complaint [None]
  - Product label issue [None]

NARRATIVE: CASE EVENT DATE: 20250830
